FAERS Safety Report 4734327-0 (Version None)
Quarter: 2005Q3

REPORT INFORMATION
  Report Type: 
  Country: None (occurrence: None)
  Receive Date: 20050804
  Receipt Date: 20050727
  Transmission Date: 20060218
  Serious: No
  Sender: FDA-Public Use
  Company Number: GB-BOEHRINGER INGELHEIM PHARMACEUTICALS, INC.-2005-DE-02917GD

PATIENT

DRUGS (2)
  1. ASPIRIN [Suspect]
     Indication: CARDIOVASCULAR DISORDER
  2. DIPYRIDAMOLE [Suspect]
     Indication: CARDIOVASCULAR DISORDER

REACTIONS (3)
  - GASTRIC ULCER [None]
  - OESOPHAGITIS [None]
  - UPPER GASTROINTESTINAL HAEMORRHAGE [None]
